FAERS Safety Report 18137305 (Version 2)
Quarter: 2020Q3

REPORT INFORMATION
  Report Type: Spontaneous
  Country: CN (occurrence: CN)
  Receive Date: 20200812
  Receipt Date: 20200814
  Transmission Date: 20201103
  Serious: Yes (Other)
  Sender: FDA-Public Use
  Company Number: CN-JNJFOC-20200810636

PATIENT

DRUGS (7)
  1. FENTANYL. [Suspect]
     Active Substance: FENTANYL
     Indication: PRODUCT USED FOR UNKNOWN INDICATION
     Dosage: 0.5 TO 1.0 MICROGRAM/KG ON ADMISSION INJECTED
     Route: 042
  2. REMIFENTANIL [Suspect]
     Active Substance: REMIFENTANIL
     Indication: GENERAL ANAESTHESIA
     Dosage: ADJUST THE DOSAGE OF REMIFENTANIL ACCORDING TO HEMODYNAMIC CONDITIONS  0.2 APPROX 0.5 MICROG . KG?1
     Route: 042
  3. PROPOFOL. [Suspect]
     Active Substance: PROPOFOL
     Indication: GENERAL ANAESTHESIA
     Dosage: 2.5?3.5 MG/KG, 6 APPROX 10 MG  KG?1  H?1
     Route: 042
  4. CISATRACURIUM. [Suspect]
     Active Substance: CISATRACURIUM
     Indication: GENERAL ANAESTHESIA
     Dosage: 0.1 ?0.2 MG/KG
     Route: 042
  5. IBUPROFEN. [Suspect]
     Active Substance: IBUPROFEN
     Indication: PRODUCT USED FOR UNKNOWN INDICATION
     Dosage: 5.0 TO APPROX 7.5 MG/KG COULD BE GIVEN ACCORDING TO THE REQUIREMENTS OF THE PATIENT AND THE FAMILY
     Route: 048
  6. SUFENTANIL [Suspect]
     Active Substance: SUFENTANIL
     Indication: GENERAL ANAESTHESIA
     Dosage: 0.4 APPROX 0.5 MICROG/KG; 0.04 MICROGRAM KG?1 H?1
     Route: 065
  7. ROPIVACAINE. [Suspect]
     Active Substance: ROPIVACAINE HYDROCHLORIDE
     Indication: GENERAL ANAESTHESIA
     Dosage: 0.3 PERCENT 0.5 ML/KG INJECTED
     Route: 065

REACTIONS (5)
  - Vomiting [Unknown]
  - Product use issue [Unknown]
  - Off label use [Unknown]
  - Nausea [Unknown]
  - Hypoxia [Unknown]
